FAERS Safety Report 5796446-X (Version None)
Quarter: 2008Q3

REPORT INFORMATION
  Report Type: 
  Country: None (occurrence: None)
  Receive Date: 20080701
  Receipt Date: 20080618
  Transmission Date: 20090109
  Serious: Yes (Other)
  Sender: FDA-Public Use
  Company Number: PHHY2008FR10647

PATIENT
  Age: 45 Year
  Sex: Female

DRUGS (1)
  1. TAREG [Suspect]
     Indication: HYPERTENSION
     Dosage: 40 MG, UNK

REACTIONS (2)
  - ANGIOEDEMA [None]
  - PSYCHOMOTOR SKILLS IMPAIRED [None]
